FAERS Safety Report 14665309 (Version 15)
Quarter: 2018Q4

REPORT INFORMATION
  Report Type: Spontaneous
  Country: CA (occurrence: CA)
  Receive Date: 20180321
  Receipt Date: 20181130
  Transmission Date: 20190204
  Serious: No
  Sender: FDA-Public Use
  Company Number: CA-CELLTRION INC.-2018CA018669

PATIENT

DRUGS (20)
  1. INFLECTRA [Suspect]
     Active Substance: INFLIXIMAB-DYYB
     Dosage: 300 MG, CYCLIC(EVERY 0, 2, 6 WEEKS, THE EVERY 8 WEEKS)
     Route: 042
     Dates: start: 20180403, end: 20180403
  2. SERTRALINE [Concomitant]
     Active Substance: SERTRALINE HYDROCHLORIDE
     Dosage: 150 MG, DAILY
     Dates: start: 201711
  3. ARIPIPRAZOLE. [Concomitant]
     Active Substance: ARIPIPRAZOLE
     Dosage: 2 MG, DAILY
     Route: 065
     Dates: start: 201712
  4. INFLECTRA [Suspect]
     Active Substance: INFLIXIMAB-DYYB
     Indication: COLITIS ULCERATIVE
     Dosage: 265 MG,(5MG/KG) CYCLIC(EVERY 0, 2, 6 WEEKS, THE EVERY 8 WEEKS)
     Route: 042
     Dates: start: 20180222, end: 20180403
  5. INFLECTRA [Suspect]
     Active Substance: INFLIXIMAB-DYYB
     Dosage: 10 MG/KG (700 MG), EVERY 4 WEEKS
     Route: 042
     Dates: start: 20180502, end: 20180502
  6. MIRTAZAPINE. [Concomitant]
     Active Substance: MIRTAZAPINE
     Dosage: 15 MG, DAILY
     Route: 065
     Dates: start: 201712
  7. MEZAVANT [Concomitant]
     Active Substance: MESALAMINE
     Dosage: 4.8 MG
     Route: 065
     Dates: start: 201802
  8. INFLECTRA [Suspect]
     Active Substance: INFLIXIMAB-DYYB
     Dosage: 10 MG/KG (700 MG), EVERY 4 WEEKS
     Route: 042
  9. INFLECTRA [Suspect]
     Active Substance: INFLIXIMAB-DYYB
     Dosage: 265 MG,(5MG/KG) CYCLIC(EVERY 0, 2, 6 WEEKS, THE EVERY 8 WEEKS)
     Route: 042
     Dates: start: 20180308, end: 20180308
  10. INFLECTRA [Suspect]
     Active Substance: INFLIXIMAB-DYYB
     Dosage: 700 MG, EVERY 4 WEEKS
     Route: 042
  11. INFLECTRA [Suspect]
     Active Substance: INFLIXIMAB-DYYB
     Dosage: 700 MG, EVERY 4 WEEKS
     Route: 042
     Dates: start: 20180904
  12. INFLECTRA [Suspect]
     Active Substance: INFLIXIMAB-DYYB
     Dosage: 10 MG/KG (700 MG), EVERY 4 WEEKS
     Route: 042
     Dates: start: 20180511, end: 20180511
  13. INFLECTRA [Suspect]
     Active Substance: INFLIXIMAB-DYYB
     Dosage: 700 MG, EVERY 4 WEEKS
     Route: 042
     Dates: start: 20180601
  14. INFLECTRA [Suspect]
     Active Substance: INFLIXIMAB-DYYB
     Dosage: 700 MG, EVERY 4 WEEKS
     Route: 042
     Dates: start: 20180628
  15. INFLECTRA [Suspect]
     Active Substance: INFLIXIMAB-DYYB
     Dosage: 700 MG, EVERY 4 WEEKS
     Route: 042
     Dates: start: 20181004
  16. QUETIAPINE. [Concomitant]
     Active Substance: QUETIAPINE
     Dosage: 37.5 MG, DAILY
     Route: 065
     Dates: start: 201801
  17. PREDNISONE. [Concomitant]
     Active Substance: PREDNISONE
     Dosage: 40 MG, DAILY
     Route: 065
     Dates: start: 201802
  18. INFLECTRA [Suspect]
     Active Substance: INFLIXIMAB-DYYB
     Dosage: 300 MG,(5MG/KG) CYCLIC(EVERY 0, 2, 6 WEEKS, THE EVERY 8 WEEKS)
     Route: 042
  19. INFLECTRA [Suspect]
     Active Substance: INFLIXIMAB-DYYB
     Dosage: 700 MG, EVERY 4 WEEKS
     Route: 042
     Dates: start: 20180801
  20. INFLECTRA [Suspect]
     Active Substance: INFLIXIMAB-DYYB
     Dosage: UNK (6 WEEKS AFTER LAST INFUSION); INTRAVENOUS
     Route: 042
     Dates: start: 20181115

REACTIONS (7)
  - Rash [Not Recovered/Not Resolved]
  - Incorrect dose administered [Unknown]
  - Drug ineffective [Recovering/Resolving]
  - Hot flush [Unknown]
  - Feeling hot [Unknown]
  - Condition aggravated [Unknown]
  - Product use issue [Unknown]

NARRATIVE: CASE EVENT DATE: 201803
